FAERS Safety Report 13750526 (Version 1)
Quarter: 2017Q3

REPORT INFORMATION
  Report Type: Spontaneous
  Country: US (occurrence: US)
  Receive Date: 20170713
  Receipt Date: 20170713
  Transmission Date: 20171127
  Serious: No
  Sender: FDA-Public Use
  Company Number: US-ASTELLAS-2016US035640

PATIENT
  Age: 73 Year
  Sex: Female

DRUGS (2)
  1. MYRBETRIQ [Suspect]
     Active Substance: MIRABEGRON
     Indication: POLLAKIURIA
     Route: 065
     Dates: start: 201608, end: 20160913
  2. ACIPHEX [Concomitant]
     Active Substance: RABEPRAZOLE SODIUM
     Indication: PRODUCT USED FOR UNKNOWN INDICATION
     Dosage: UNK UNK, UNKNOWN FREQ.
     Route: 065
     Dates: start: 201609

REACTIONS (9)
  - Abnormal dreams [Recovered/Resolved]
  - Palpitations [Recovered/Resolved]
  - Tachycardia [Recovered/Resolved]
  - Urinary hesitation [Recovered/Resolved]
  - Headache [Recovered/Resolved]
  - Heart rate increased [Recovered/Resolved]
  - Faeces hard [Recovered/Resolved]
  - Drug ineffective [Unknown]
  - Abdominal pain [Recovered/Resolved]
